FAERS Safety Report 6445243-0 (Version None)
Quarter: 2009Q4

REPORT INFORMATION
  Report Type: 
  Country: None (occurrence: None)
  Receive Date: 20091118
  Receipt Date: 20091112
  Transmission Date: 20100525
  Serious: Yes (Other)
  Sender: FDA-Public Use
  Company Number: US-JNJFOC-20091103281

PATIENT
  Sex: Female

DRUGS (3)
  1. LEVAQUIN [Suspect]
     Indication: URINARY TRACT INFECTION
     Route: 050
     Dates: start: 20091001, end: 20091001
  2. LEVAQUIN [Suspect]
     Route: 048
     Dates: start: 20091001
  3. LEVAQUIN [Suspect]
     Route: 048
     Dates: start: 20091001

REACTIONS (5)
  - APHONIA [None]
  - PARAESTHESIA [None]
  - PRURITUS GENERALISED [None]
  - RASH GENERALISED [None]
  - VOCAL CORD INFLAMMATION [None]
